APPROVED DRUG PRODUCT: TEPADINA
Active Ingredient: THIOTEPA
Strength: 100MG/VIAL
Dosage Form/Route: POWDER;INTRACAVITARY, INTRAVENOUS, INTRAVESICAL
Application: N208264 | Product #002 | TE Code: AP
Applicant: ADIENNE SA
Approved: Jan 26, 2017 | RLD: Yes | RS: Yes | Type: RX